FAERS Safety Report 19438077 (Version 1)
Quarter: 2021Q2

REPORT INFORMATION
  Report Type: Spontaneous
  Country: US (occurrence: US)
  Receive Date: 20210619
  Receipt Date: 20210619
  Transmission Date: 20210717
  Serious: Yes (Other)
  Sender: FDA-Public Use
  Company Number: US-AUROBINDO-AUR-APL-2021-025344

PATIENT
  Sex: Female

DRUGS (2)
  1. MEROPENEM. [Suspect]
     Active Substance: MEROPENEM
     Indication: PYELONEPHRITIS
     Dosage: UNK
     Route: 065
  2. MEROPENEM. [Suspect]
     Active Substance: MEROPENEM
     Indication: UROSEPSIS

REACTIONS (4)
  - Septic shock [Recovering/Resolving]
  - Hypotension [Recovering/Resolving]
  - Jarisch-Herxheimer reaction [Recovering/Resolving]
  - Cytokine release syndrome [Recovering/Resolving]
